FAERS Safety Report 19985239 (Version 2)
Quarter: 2021Q4

REPORT INFORMATION
  Report Type: Spontaneous
  Country: US (occurrence: US)
  Receive Date: 20211022
  Receipt Date: 20211104
  Transmission Date: 20220304
  Serious: Yes (Hospitalization, Other)
  Sender: FDA-Public Use
  Company Number: US-PFIZER INC-202101367064

PATIENT
  Age: 58 Year
  Sex: Male
  Weight: 78.47 kg

DRUGS (2)
  1. AMLODIPINE BESYLATE [Suspect]
     Active Substance: AMLODIPINE BESYLATE
     Indication: Hypertension
     Dosage: UNK
     Dates: start: 2011
  2. INSULIN NOS [Concomitant]
     Active Substance: INSULIN NOS
     Indication: Diabetes mellitus
     Dosage: 23U, 1X/DAY

REACTIONS (6)
  - Brain stem stroke [Unknown]
  - Condition aggravated [Unknown]
  - Illness [Unknown]
  - Cataract [Unknown]
  - Monoplegia [Unknown]
  - Weight decreased [Unknown]

NARRATIVE: CASE EVENT DATE: 20110101
